FAERS Safety Report 10562763 (Version 1)
Quarter: 2014Q4

REPORT INFORMATION
  Report Type: Spontaneous
  Country: US (occurrence: US)
  Receive Date: 20141104
  Receipt Date: 20141104
  Transmission Date: 20150529
  Serious: No
  Sender: FDA-Public Use
  Company Number: US-SHIRE-US201407144

PATIENT
  Age: 50 Year
  Sex: Female

DRUGS (1)
  1. LIALDA [Suspect]
     Active Substance: MESALAMINE
     Indication: COLITIS MICROSCOPIC
     Dosage: UNK, UNKNOWN
     Route: 048
     Dates: start: 2014

REACTIONS (3)
  - Headache [Unknown]
  - Influenza like illness [Unknown]
  - Product use issue [Unknown]

NARRATIVE: CASE EVENT DATE: 2014
